FAERS Safety Report 8622866-1 (Version None)
Quarter: 2012Q3

REPORT INFORMATION
  Report Type: 
  Country: None (occurrence: None)
  Receive Date: 20120827
  Receipt Date: 20120822
  Transmission Date: 20120928
  Serious: Yes (Other)
  Sender: FDA-Public Use
  Company Number: PHHY2012BR030897

PATIENT
  Age: 53 Year
  Sex: Male

DRUGS (3)
  1. TRILEPTAL [Suspect]
     Indication: EPILEPSY
     Dosage: 600 MG, DAILY AT NIGHT
  2. CLONAZEPAM [Concomitant]
  3. HALDOL [Concomitant]
     Dosage: 5 MG, UNK

REACTIONS (21)
  - SLEEP DISORDER [None]
  - SELF INJURIOUS BEHAVIOUR [None]
  - DISABILITY [None]
  - HEAD DISCOMFORT [None]
  - RETCHING [None]
  - COUGH [None]
  - FEELING ABNORMAL [None]
  - MEMORY IMPAIRMENT [None]
  - VOMITING [None]
  - DEPRESSION [None]
  - SALIVARY HYPERSECRETION [None]
  - WRONG TECHNIQUE IN DRUG USAGE PROCESS [None]
  - SOMNOLENCE [None]
  - NAUSEA [None]
  - CARDIAC MURMUR [None]
  - RESTLESSNESS [None]
  - PAIN [None]
  - HEADACHE [None]
  - MALAISE [None]
  - DIZZINESS [None]
  - DYSGEUSIA [None]
